FAERS Safety Report 7700610-X (Version None)
Quarter: 2011Q3

REPORT INFORMATION
  Report Type: 
  Country: None (occurrence: None)
  Receive Date: 20110822
  Receipt Date: 20110822
  Transmission Date: 20111222
  Serious: Yes (Other)
  Sender: FDA-Public Use
  Company Number: None

PATIENT
  Age: 27 Year
  Sex: Female
  Weight: 58.967 kg

DRUGS (4)
  1. PROGRAF [Concomitant]
  2. ALBUTEROL SULFATE AUTOHALER [Concomitant]
  3. WELCHOL [Concomitant]
  4. MIRENA [Suspect]
     Indication: CONTRACEPTION
     Dosage: 1
     Route: 067
     Dates: start: 20100228, end: 20110819

REACTIONS (3)
  - FATIGUE [None]
  - AMENORRHOEA [None]
  - LIBIDO DECREASED [None]
